FAERS Safety Report 5674074-4 (Version None)
Quarter: 2008Q2

REPORT INFORMATION
  Report Type: 
  Country: None (occurrence: None)
  Receive Date: 20080228
  Receipt Date: 20070130
  Transmission Date: 20081010
  Serious: Yes (Other)
  Sender: FDA-Public Use
  Company Number: 002#4#2007-00022

PATIENT
  Age: 33 Year
  Sex: Female

DRUGS (1)
  1. REGLAN [Suspect]
     Indication: POST GASTRIC SURGERY SYNDROME
     Dosage: 5MG,3 IN 1 D,ORAL
     Route: 048
     Dates: start: 20051201, end: 20051201

REACTIONS (2)
  - HYPERSENSITIVITY [None]
  - TARDIVE DYSKINESIA [None]
